FAERS Safety Report 10463779 (Version 5)
Quarter: 2015Q2

REPORT INFORMATION
  Report Type: Report from Study
  Country: CA (occurrence: CA)
  Receive Date: 20140919
  Receipt Date: 20150409
  Transmission Date: 20150821
  Serious: Yes (Other)
  Sender: FDA-Public Use
  Company Number: PHHY2013CA062729

PATIENT
  Sex: Female

DRUGS (14)
  1. WATER PILLS [Concomitant]
     Active Substance: UNSPECIFIED INGREDIENT
     Indication: PRODUCT USED FOR UNKNOWN INDICATION
     Route: 065
  2. SEROPLEX [Concomitant]
     Active Substance: ESCITALOPRAM OXALATE
     Indication: PRODUCT USED FOR UNKNOWN INDICATION
     Route: 065
  3. SULCRATE [Concomitant]
     Active Substance: SUCRALFATE
     Indication: PRODUCT USED FOR UNKNOWN INDICATION
     Dosage: 1 G, QID
     Route: 065
  4. VITAMIN B12 [Concomitant]
     Active Substance: CYANOCOBALAMIN
     Indication: PRODUCT USED FOR UNKNOWN INDICATION
     Dosage: UNK UNK, QMO (EVERY MONTH)
     Route: 065
  5. GLEEVEC [Suspect]
     Active Substance: IMATINIB MESYLATE
     Dosage: 600 MG, QD
     Route: 065
     Dates: start: 2009, end: 201405
  6. OMEPRAZOLE. [Concomitant]
     Active Substance: OMEPRAZOLE
     Indication: PRODUCT USED FOR UNKNOWN INDICATION
     Dosage: 20 MG, BID
     Route: 065
  7. GLEEVEC [Suspect]
     Active Substance: IMATINIB MESYLATE
     Dosage: 400 MG, UNK
     Route: 048
     Dates: start: 20140710
  8. VITAMIN D [Concomitant]
     Active Substance: CHOLECALCIFEROL
     Indication: PRODUCT USED FOR UNKNOWN INDICATION
     Route: 065
  9. GLEEVEC [Suspect]
     Active Substance: IMATINIB MESYLATE
     Dosage: 800 MG, QD
     Route: 048
  10. GLEEVEC [Suspect]
     Active Substance: IMATINIB MESYLATE
     Dosage: 400 MG, BID
     Route: 048
     Dates: end: 20150319
  11. CIPRALEX [Concomitant]
     Active Substance: ESCITALOPRAM OXALATE
     Indication: PRODUCT USED FOR UNKNOWN INDICATION
     Route: 065
  12. MULTIVITAMINS [Concomitant]
     Active Substance: VITAMINS
     Indication: PRODUCT USED FOR UNKNOWN INDICATION
     Route: 065
  13. GLEEVEC [Suspect]
     Active Substance: IMATINIB MESYLATE
     Dosage: 600 MG, QD
     Route: 048
  14. GLEEVEC [Suspect]
     Active Substance: IMATINIB MESYLATE
     Indication: GASTROINTESTINAL STROMAL TUMOUR
     Dosage: 600 MG, QD
     Route: 048
     Dates: start: 200701

REACTIONS (42)
  - Food aversion [Unknown]
  - Throat irritation [Recovering/Resolving]
  - Pruritus [Unknown]
  - Fatigue [Recovering/Resolving]
  - Diarrhoea [Recovering/Resolving]
  - Muscle spasms [Unknown]
  - Bone pain [Unknown]
  - Dyspepsia [Recovering/Resolving]
  - Hepatic lesion [Not Recovered/Not Resolved]
  - Blood potassium decreased [Unknown]
  - Gout [Unknown]
  - Wound [Unknown]
  - Malnutrition [Unknown]
  - Conjunctival hyperaemia [Unknown]
  - Insomnia [Not Recovered/Not Resolved]
  - Drug ineffective [Unknown]
  - Malignant neoplasm progression [Unknown]
  - Skin sensitisation [Unknown]
  - Decreased appetite [Recovered/Resolved]
  - Vomiting [Unknown]
  - Periorbital oedema [Unknown]
  - Abdominal pain upper [Unknown]
  - Eating disorder [Unknown]
  - Gastrointestinal stromal tumour [Unknown]
  - Laceration [Unknown]
  - Skin burning sensation [Recovering/Resolving]
  - Dysgeusia [Recovered/Resolved]
  - Lichen planus [Unknown]
  - Lacrimation increased [Unknown]
  - Eye swelling [Unknown]
  - Burning sensation [Unknown]
  - Cheilitis [Unknown]
  - Metastases to liver [Unknown]
  - Eye discharge [Unknown]
  - Nausea [Unknown]
  - Peripheral swelling [Unknown]
  - Malaise [Unknown]
  - Gastroenteritis viral [Unknown]
  - Blood blister [Unknown]
  - Weight decreased [Unknown]
  - Gastritis [Unknown]
  - Stomatitis [Unknown]

NARRATIVE: CASE EVENT DATE: 2009
